FAERS Safety Report 6779907-6 (Version None)
Quarter: 2010Q2

REPORT INFORMATION
  Report Type: 
  Country: None (occurrence: None)
  Receive Date: 20100618
  Receipt Date: 20100614
  Transmission Date: 20101027
  Serious: Yes (Death, Hospitalization)
  Sender: FDA-Public Use
  Company Number: SE-MERCK-1005SWE00024

PATIENT
  Age: 46 Year
  Sex: Male

DRUGS (17)
  1. ISENTRESS [Suspect]
     Indication: HIV INFECTION
     Route: 048
     Dates: start: 20090507, end: 20100401
  2. ABACAVIR SULFATE AND LAMIVUDINE [Suspect]
     Indication: HIV INFECTION
     Route: 048
     Dates: start: 20090305, end: 20100401
  3. ZOCOR [Suspect]
     Indication: HYPERCHOLESTEROLAEMIA
     Route: 048
     Dates: start: 20091214, end: 20100401
  4. PRAVASTATIN SODIUM [Suspect]
     Indication: HYPERCHOLESTEROLAEMIA
     Route: 048
     Dates: start: 20100127, end: 20100401
  5. PANCREATIN [Concomitant]
     Route: 065
  6. INSULIN HUMAN, ISOPHANE [Concomitant]
     Route: 065
  7. TESTOSTERONE UNDECANOATE [Concomitant]
     Route: 065
  8. CYANOCOBALAMIN AND FOLIC ACID AND PYRIDOXINE HYDROCHLORIDE [Concomitant]
     Route: 065
  9. VITAMIN E ACETATE DL-FORM [Concomitant]
     Route: 065
  10. ASCORBIC ACID [Concomitant]
     Route: 065
  11. DIAZEPAM [Concomitant]
     Route: 065
  12. POTASSIUM CHLORIDE [Concomitant]
     Route: 065
  13. LISINOPRIL [Concomitant]
     Route: 065
  14. METOPROLOL SUCCINATE [Concomitant]
     Route: 065
  15. ASPIRIN [Concomitant]
     Route: 065
  16. ALLOPURINOL [Concomitant]
     Route: 065
  17. ORLISTAT [Concomitant]
     Route: 065

REACTIONS (4)
  - MULTI-ORGAN FAILURE [None]
  - PANCREATIC NECROSIS [None]
  - PANCREATITIS [None]
  - RHABDOMYOLYSIS [None]
